FAERS Safety Report 9195463 (Version 1)
Quarter: 2013Q1

REPORT INFORMATION
  Report Type: Spontaneous
  Country: US (occurrence: US)
  Receive Date: 20130328
  Receipt Date: 20130328
  Transmission Date: 20140127
  Serious: Yes (Hospitalization, Other)
  Sender: FDA-Public Use
  Company Number: US-PAR PHARMACEUTICAL, INC-2013SCPR005834

PATIENT
  Sex: 0

DRUGS (3)
  1. FENTANYL TRANSDERMAL SYSTEM [Suspect]
     Indication: FRACTURE PAIN
     Dosage: 1 PATCH, EVERY 72 HOURS
     Route: 062
     Dates: start: 201301, end: 20130312
  2. TRAMADOL [Suspect]
     Indication: PAIN
     Dosage: 1 DF, AS AND WHEN REQUIRED
     Route: 048
  3. NAMENDA [Concomitant]
     Indication: DEMENTIA
     Dosage: 1 DF, ONCE DAILY
     Route: 048

REACTIONS (4)
  - Hypersomnia [Not Recovered/Not Resolved]
  - Eating disorder [Not Recovered/Not Resolved]
  - Gait disturbance [Not Recovered/Not Resolved]
  - Mood swings [Unknown]
